FAERS Safety Report 8254846-2 (Version None)
Quarter: 2012Q2

REPORT INFORMATION
  Report Type: 
  Country: None (occurrence: None)
  Receive Date: 20120403
  Receipt Date: 20120330
  Transmission Date: 20120825
  Serious: Yes (Hospitalization)
  Sender: FDA-Public Use
  Company Number: PHEH2012US006992

PATIENT
  Sex: Female

DRUGS (10)
  1. RYTHMOL [Concomitant]
  2. CALAN [Concomitant]
  3. INDERAL [Concomitant]
  4. XANAX [Concomitant]
  5. PROPRANOLOL [Concomitant]
  6. TOPROL-XL [Concomitant]
  7. LOPRESSOR [Concomitant]
     Dosage: 0.5 DF, UNK
  8. METOPROLOL TARTRATE [Suspect]
  9. VERAPAMIL [Concomitant]
  10. LOPRESSOR [Concomitant]
     Dosage: 1 DF, UNK

REACTIONS (4)
  - DYSPNOEA [None]
  - COUGH [None]
  - HEART RATE INCREASED [None]
  - RESPIRATORY TRACT CONGESTION [None]
